FAERS Safety Report 5425955-8 (Version None)
Quarter: 2007Q3

REPORT INFORMATION
  Report Type: 
  Country: None (occurrence: None)
  Receive Date: 20070824
  Receipt Date: 20070824
  Transmission Date: 20080115
  Serious: Yes (Other)
  Sender: FDA-Public Use
  Company Number: None

PATIENT
  Age: 40 Year
  Sex: Male
  Weight: 123 kg

DRUGS (7)
  1. HEPARIN [Suspect]
     Indication: PROPHYLAXIS
     Dosage: 5000 UNITS SQ 8?
     Route: 058
     Dates: start: 20070201, end: 20070207
  2. RANITIDINE [Concomitant]
  3. APAP TAB [Concomitant]
  4. LISINOPRIL [Concomitant]
  5. ALPRAZOLAM [Concomitant]
  6. DEXAMETHASONE 0.5MG TAB [Concomitant]
  7. DOCUSATE [Concomitant]

REACTIONS (3)
  - BRAIN OEDEMA [None]
  - CEREBELLAR HAEMORRHAGE [None]
  - INTRACRANIAL PRESSURE INCREASED [None]
